FAERS Safety Report 15494665 (Version 1)
Quarter: 2018Q4

REPORT INFORMATION
  Report Type: Spontaneous
  Country: US (occurrence: US)
  Receive Date: 20181012
  Receipt Date: 20181012
  Transmission Date: 20190205
  Serious: No
  Sender: FDA-Public Use
  Company Number: US-TEVA-2018-US-961807

PATIENT
  Sex: Female

DRUGS (1)
  1. ACTAVIS SULINDAC [Suspect]
     Active Substance: SULINDAC
     Route: 065

REACTIONS (2)
  - Vomiting [Unknown]
  - Retching [Unknown]
